FAERS Safety Report 4906717-4 (Version None)
Quarter: 2006Q1

REPORT INFORMATION
  Report Type: 
  Country: None (occurrence: None)
  Receive Date: 20060206
  Receipt Date: 20060124
  Transmission Date: 20060701
  Serious: Yes (Hospitalization)
  Sender: FDA-Public Use
  Company Number: US015795

PATIENT
  Age: 50 Year
  Sex: Female
  Weight: 47.6277 kg

DRUGS (5)
  1. ACTIQ [Suspect]
     Indication: BACK PAIN
     Dosage: 400 UG BUCCAL
     Route: 002
     Dates: start: 20050401, end: 20060101
  2. DURAGESIC-100 [Concomitant]
  3. FIORICET [Concomitant]
  4. LITHIUM [Concomitant]
  5. ADDERALL 10 [Concomitant]

REACTIONS (10)
  - ACCIDENTAL OVERDOSE [None]
  - BLOOD POTASSIUM DECREASED [None]
  - DEHYDRATION [None]
  - DISORIENTATION [None]
  - DRUG DEPENDENCE [None]
  - EYE ROLLING [None]
  - JAW DISORDER [None]
  - SOMNOLENCE [None]
  - STUPOR [None]
  - THINKING ABNORMAL [None]
